FAERS Safety Report 4952453-8 (Version None)
Quarter: 2006Q1

REPORT INFORMATION
  Report Type: 
  Country: None (occurrence: None)
  Receive Date: 20060323
  Receipt Date: 20050829
  Transmission Date: 20060701
  Serious: Yes (Hospitalization)
  Sender: FDA-Public Use
  Company Number: US-MERCK-0508USA04813

PATIENT
  Age: 58 Year
  Sex: Male
  Weight: 89 kg

DRUGS (4)
  1. VIOXX [Suspect]
     Indication: MONARTHRITIS
     Route: 048
     Dates: start: 19990101, end: 20040101
  2. LIPITOR [Concomitant]
     Route: 065
  3. AVAPRO [Concomitant]
     Route: 065
  4. BENICAR [Concomitant]
     Route: 065

REACTIONS (2)
  - ARTHROPATHY [None]
  - RENAL IMPAIRMENT [None]
